FAERS Safety Report 9640418 (Version 2)
Quarter: 2013Q4

REPORT INFORMATION
  Report Type: Spontaneous
  Country: US (occurrence: US)
  Receive Date: 20131023
  Receipt Date: 20131227
  Transmission Date: 20140711
  Serious: Yes (Other)
  Sender: FDA-Public Use
  Company Number: US-NOVOPROD-390141

PATIENT
  Age: 16 Year
  Sex: Male
  Weight: 108.6 kg

DRUGS (12)
  1. NORDITROPIN FLEXPRO 10 MG/ML [Suspect]
     Indication: HYPOPITUITARISM
     Dosage: 1.5 MG, QD
     Route: 058
     Dates: end: 20131014
  2. ANDROGENS [Concomitant]
     Indication: ANDROGEN DEFICIENCY
     Dosage: 4 MG/24 HR
     Route: 062
  3. LEVOTHYROXINE [Concomitant]
     Indication: HYPOPITUITARISM
     Dosage: 150 ?G, QD
     Route: 048
  4. HYDROCORTISONE [Concomitant]
     Indication: HYPOPITUITARISM
     Dosage: UNK
     Route: 048
  5. WELLBUTRIN [Concomitant]
     Indication: PRODUCT USED FOR UNKNOWN INDICATION
     Dosage: 150 MG, BID
     Route: 048
  6. METFORMIN [Concomitant]
     Indication: DIABETES INSIPIDUS
     Dosage: 1000 MG, BID
     Route: 048
  7. DDAVP                              /00361901/ [Concomitant]
     Indication: DIABETES INSIPIDUS
     Dosage: 1.6 MG, QD
     Route: 048
  8. ZYRTEC [Concomitant]
     Indication: SEASONAL ALLERGY
     Dosage: UNK, PRN
     Route: 048
  9. IRON [Concomitant]
     Indication: SUPPLEMENTATION THERAPY
     Dosage: UNK
     Route: 048
  10. MAGNESIUM [Concomitant]
     Indication: SUPPLEMENTATION THERAPY
     Dosage: UNK
     Route: 048
  11. MULTIVITAMIN                       /00097801/ [Concomitant]
     Indication: SUPPLEMENTATION THERAPY
     Dosage: UNK
     Route: 048
  12. FISH OIL [Concomitant]
     Indication: PRODUCT USED FOR UNKNOWN INDICATION
     Dosage: UNK
     Route: 048

REACTIONS (2)
  - Craniopharyngioma [Not Recovered/Not Resolved]
  - Condition aggravated [Not Recovered/Not Resolved]
